FAERS Safety Report 13668848 (Version 1)
Quarter: 2017Q2

REPORT INFORMATION
  Report Type: Spontaneous
  Country: FR (occurrence: FR)
  Receive Date: 20170620
  Receipt Date: 20170620
  Transmission Date: 20170830
  Serious: Yes (Hospitalization, Other)
  Sender: FDA-Public Use
  Company Number: FR-ELI_LILLY_AND_COMPANY-FR201706003293

PATIENT
  Age: 67 Year
  Sex: Male

DRUGS (7)
  1. ALIMTA [Suspect]
     Active Substance: PEMETREXED DISODIUM
     Indication: LUNG ADENOCARCINOMA
  2. CISPLATINE [Suspect]
     Active Substance: CISPLATIN
     Indication: LUNG CANCER METASTATIC
     Dosage: UNK UNK, CYCLICAL
     Route: 042
     Dates: start: 201106, end: 201108
  3. IRESSA [Suspect]
     Active Substance: GEFITINIB
     Indication: LUNG CANCER METASTATIC
     Dosage: UNK UNK, UNKNOWN
     Route: 048
     Dates: start: 201202, end: 20161105
  4. ALIMTA [Suspect]
     Active Substance: PEMETREXED DISODIUM
     Indication: LUNG CANCER METASTATIC
     Dosage: UNK UNK, CYCLICAL
     Route: 042
     Dates: start: 201106, end: 201108
  5. TAGRISSO [Suspect]
     Active Substance: OSIMERTINIB
     Indication: LUNG CANCER METASTATIC
     Dosage: UNK UNK, UNKNOWN
     Route: 048
     Dates: start: 20161105, end: 20170412
  6. SOTALEX [Concomitant]
     Active Substance: SOTALOL
     Indication: PRODUCT USED FOR UNKNOWN INDICATION
     Dosage: 160 MG, DAILY
     Route: 065
  7. CISPLATINE [Suspect]
     Active Substance: CISPLATIN
     Indication: LUNG ADENOCARCINOMA

REACTIONS (6)
  - Myelofibrosis [Not Recovered/Not Resolved]
  - Thrombocytopenia [Unknown]
  - Haemorrhagic disorder [Unknown]
  - Refractory anaemia with an excess of blasts [Not Recovered/Not Resolved]
  - Malignant neoplasm progression [Unknown]
  - Pancytopenia [Unknown]

NARRATIVE: CASE EVENT DATE: 2015
